FAERS Safety Report 10387863 (Version 1)
Quarter: 2014Q1

REPORT INFORMATION
  Report Type: Spontaneous
  Country: US (occurrence: None)
  Receive Date: 20140306
  Receipt Date: 20140306
  Transmission Date: 20141002
  Serious: Yes (Hospitalization)
  Sender: FDA-Public Use
  Company Number: 163-21880-13110157

PATIENT
  Age: 73 Year
  Sex: Female
  Weight: 94.8 kg

DRUGS (10)
  1. REVLIMID (LENALIDOMIDE) (25 MILLIGRAM, CAPSULES) [Suspect]
     Indication: PLASMA CELL MYELOMA
     Dosage: 25 MG, 21 IN 28 D, PO
     Route: 048
     Dates: start: 20130910
  2. METRONIDAZOLE (METRONIDAZOLE) [Concomitant]
  3. GABAPENTIN (GABAPENTIN) [Concomitant]
  4. DICLOFENAC SODIUM (DICLOFENAC SODIUM) [Concomitant]
  5. CARVEDILOL (CARVEDILOL) [Concomitant]
  6. LOSARTAN (LOSARTAN) [Concomitant]
  7. FUROSEMIDE (FUROSEMIDE) [Concomitant]
  8. OXYBUTYNIN CHLORIDE (OXYBUTYNIN HYDROCHLORIDE) [Concomitant]
  9. POTASSIUM CHLORIDE (POTSSIUM CHLORIDE) [Concomitant]
  10. MULTIVITAMINS (MULTIVITAMINS) [Concomitant]

REACTIONS (1)
  - Pneumonia [None]
